FAERS Safety Report 16476093 (Version 2)
Quarter: 2019Q3

REPORT INFORMATION
  Report Type: Spontaneous
  Country: JP (occurrence: US)
  Receive Date: 20190625
  Receipt Date: 20190703
  Transmission Date: 20191004
  Serious: Yes (Other)
  Sender: FDA-Public Use
  Company Number: JP-ASTRAZENECA-2019SE17507

PATIENT
  Age: 28307 Day
  Sex: Male
  Weight: 55 kg

DRUGS (7)
  1. CALONAL [Concomitant]
     Active Substance: ACETAMINOPHEN
     Indication: PAIN
     Route: 048
  2. IMFINZI [Suspect]
     Active Substance: DURVALUMAB
     Indication: NON-SMALL CELL LUNG CANCER
     Route: 041
     Dates: start: 20181128, end: 20190208
  3. LYRICA [Concomitant]
     Active Substance: PREGABALIN
     Indication: PAIN
     Route: 048
     Dates: end: 20190314
  4. FEBURIC [Concomitant]
     Active Substance: FEBUXOSTAT
     Indication: HYPERURICAEMIA
     Route: 048
  5. FAMOTIDINE. [Concomitant]
     Active Substance: FAMOTIDINE
     Indication: GASTRITIS PROPHYLAXIS
     Route: 048
     Dates: end: 20190221
  6. CILNIDIPINE [Concomitant]
     Active Substance: CILNIDIPINE
     Indication: HYPERTENSION
     Route: 048
  7. KALIAID [Concomitant]
     Active Substance: CALCIUM POLYSTYRENE SULFONATE
     Route: 048

REACTIONS (5)
  - Lung carcinoma cell type unspecified recurrent [Unknown]
  - Interstitial lung disease [Unknown]
  - Malignant neoplasm progression [Unknown]
  - Pneumonitis [Recovering/Resolving]
  - Metastases to liver [Unknown]

NARRATIVE: CASE EVENT DATE: 20190215
